FAERS Safety Report 16648326 (Version 1)
Quarter: 2019Q3

REPORT INFORMATION
  Report Type: Spontaneous
  Country: US (occurrence: US)
  Receive Date: 20190730
  Receipt Date: 20190730
  Transmission Date: 20191004
  Serious: No
  Sender: FDA-Public Use
  Company Number: US-JNJFOC-20190716883

PATIENT
  Age: 83 Year
  Sex: Male

DRUGS (3)
  1. TYLENOL REGULAR STRENGTH [Suspect]
     Active Substance: ACETAMINOPHEN
     Indication: PAIN
     Dosage: 2 TABLETS AT BEDTIME FOR YEARS
     Route: 048
  2. TYLENOL REGULAR STRENGTH [Suspect]
     Active Substance: ACETAMINOPHEN
     Indication: ARTHRITIS
     Dosage: TOOK 2 MORE TABLETS ON 09/JUL/2019 ABOUT 0125H.
     Route: 048
     Dates: start: 20190708
  3. TYLENOL EXTRA STRENGTH [Concomitant]
     Active Substance: ACETAMINOPHEN
     Indication: BACK PAIN
     Dosage: TAKING DAILY, BUT LESS THAN THE ALLOWED 10 TABLETS IN 24 HOURS
     Route: 065
     Dates: start: 20190214

REACTIONS (7)
  - Dysgeusia [Not Recovered/Not Resolved]
  - Foreign body in respiratory tract [Recovered/Resolved]
  - Tongue discolouration [Not Recovered/Not Resolved]
  - Abdominal discomfort [Unknown]
  - Product administration error [Unknown]
  - Eructation [Unknown]
  - Product physical issue [Unknown]

NARRATIVE: CASE EVENT DATE: 20190708
